FAERS Safety Report 6464106-8 (Version None)
Quarter: 2009Q4

REPORT INFORMATION
  Report Type: 
  Country: None (occurrence: None)
  Receive Date: 20091201
  Receipt Date: 20091029
  Transmission Date: 20100525
  Serious: No
  Sender: FDA-Public Use
  Company Number: US-BAYER-200937997NA

PATIENT

DRUGS (2)
  1. BETASERON [Suspect]
     Indication: MULTIPLE SCLEROSIS
     Route: 058
     Dates: start: 20080501, end: 20081101
  2. BETASERON [Suspect]
     Dosage: AS USED: 8 MIU
     Route: 058
     Dates: start: 20081201

REACTIONS (1)
  - HEPATIC ENZYME INCREASED [None]
